FAERS Safety Report 7781040-1 (Version None)
Quarter: 2011Q3

REPORT INFORMATION
  Report Type: 
  Country: None (occurrence: None)
  Receive Date: 20110923
  Receipt Date: 20110920
  Transmission Date: 20111222
  Serious: Yes (Hospitalization)
  Sender: FDA-Public Use
  Company Number: DAV-ATE-11-05

PATIENT
  Age: 91 Year
  Sex: Female

DRUGS (2)
  1. ATENOLOL [Suspect]
     Indication: ELECTROCARDIOGRAM QT INTERVAL
     Dosage: 100 MG, TWICE DAILY
  2. MOXIFLOXACIN (AVALOX) [Concomitant]

REACTIONS (6)
  - SYNCOPE [None]
  - ELECTROCARDIOGRAM QT PROLONGED [None]
  - SUPRAVENTRICULAR EXTRASYSTOLES [None]
  - BRADYCARDIA [None]
  - LOSS OF CONSCIOUSNESS [None]
  - TORSADE DE POINTES [None]
